FAERS Safety Report 7454798-9 (Version None)
Quarter: 2011Q2

REPORT INFORMATION
  Report Type: 
  Country: None (occurrence: None)
  Receive Date: 20110503
  Receipt Date: 20100505
  Transmission Date: 20111010
  Serious: No
  Sender: FDA-Public Use
  Company Number: US-PFIZER INC-2010057386

PATIENT
  Sex: Female
  Weight: 92.063 kg

DRUGS (9)
  1. ADVAIR DISKUS 100/50 [Concomitant]
     Indication: ASTHMA
  2. ALBUTEROL [Concomitant]
     Indication: MULTIPLE ALLERGIES
     Dosage: UNK
  3. NASACORT [Concomitant]
     Indication: ASTHMA
  4. CLARITIN [Concomitant]
     Indication: ASTHMA
  5. DEPO-PROVERA [Suspect]
     Indication: CONTRACEPTION
     Dosage: 150 MG, UNK
     Dates: start: 20100430
  6. ADVAIR DISKUS 100/50 [Concomitant]
     Indication: MULTIPLE ALLERGIES
     Dosage: UNK
  7. NASACORT [Concomitant]
     Indication: MULTIPLE ALLERGIES
     Dosage: UNK
  8. ALBUTEROL [Concomitant]
     Indication: ASTHMA
  9. CLARITIN [Concomitant]
     Indication: MULTIPLE ALLERGIES
     Dosage: UNK

REACTIONS (1)
  - RASH [None]
